FAERS Safety Report 7409025-5 (Version None)
Quarter: 2011Q2

REPORT INFORMATION
  Report Type: 
  Country: None (occurrence: None)
  Receive Date: 20110412
  Receipt Date: 20110330
  Transmission Date: 20111010
  Serious: Yes (Other)
  Sender: FDA-Public Use
  Company Number: PHHY2011GB28072

PATIENT
  Sex: Male

DRUGS (1)
  1. CLOZAPINE [Suspect]
     Dosage: UNK UKN, UNK
     Dates: start: 20010101

REACTIONS (10)
  - TOXICITY TO VARIOUS AGENTS [None]
  - SCHIZOPHRENIA [None]
  - DELUSION [None]
  - MALAISE [None]
  - ABSCESS [None]
  - VOMITING [None]
  - DIARRHOEA [None]
  - POISONING [None]
  - HYPOCHONDRIASIS [None]
  - DELIRIUM [None]
